FAERS Safety Report 21837973 (Version 7)
Quarter: 2025Q4

REPORT INFORMATION
  Report Type: Spontaneous
  Country: EU (occurrence: EU)
  Receive Date: 20230109
  Receipt Date: 20251202
  Transmission Date: 20260117
  Serious: Yes (Death, Life-Threatening, Hospitalization, Other)
  Sender: MYLAN
  Company Number: EU-CELLTRION HEALTHCARE HUNGARY KFT-2022RO019335

PATIENT
  Age: 42 Year
  Sex: Male

DRUGS (4)
  1. DEXAMETHASONE [Suspect]
     Active Substance: DEXAMETHASONE
     Indication: Waldenstrom^s macroglobulinaemia
     Dosage: 40 MILLIGRAM, 1 CYCLICAL
  2. BORTEZOMIB [Suspect]
     Active Substance: BORTEZOMIB
     Indication: Waldenstrom^s macroglobulinaemia
     Dosage: 1.3 MILLIGRAM/SQ. METER, CYCLICAL
  3. RITUXIMAB [Suspect]
     Active Substance: RITUXIMAB
     Indication: Waldenstrom^s macroglobulinaemia
     Dosage: UNK
  4. CYCLOPHOSPHAMIDE [Suspect]
     Active Substance: CYCLOPHOSPHAMIDE
     Indication: Waldenstrom^s macroglobulinaemia
     Dosage: 300 MILLIGRAM/SQ. METER, CYCLICAL

REACTIONS (11)
  - Cardiotoxicity [Fatal]
  - Right ventricular failure [Fatal]
  - Pulmonary arterial hypertension [Fatal]
  - Hyperviscosity syndrome [Fatal]
  - Cardiomyopathy [Fatal]
  - Pulmonary embolism [Fatal]
  - Pericardial effusion [Fatal]
  - Heart failure with preserved ejection fraction [Fatal]
  - Raynaud^s phenomenon [Fatal]
  - Drug ineffective [Unknown]
  - Off label use [Unknown]
